FAERS Safety Report 8289257-7 (Version None)
Quarter: 2012Q2

REPORT INFORMATION
  Report Type: 
  Country: None (occurrence: None)
  Receive Date: 20120417
  Receipt Date: 20120411
  Transmission Date: 20120825
  Serious: Yes (Hospitalization)
  Sender: FDA-Public Use
  Company Number: PHHY2012AU030820

PATIENT
  Age: 29 Year
  Sex: Male

DRUGS (5)
  1. ACETAMINOPHEN [Suspect]
     Dosage: 50 G
  2. OLANZAPINE [Suspect]
     Dosage: 200 MG
  3. VALPROIC ACID [Suspect]
     Dosage: 2 G
  4. ALCOHOL [Concomitant]
  5. AMITRIPTYLINE HCL [Suspect]
     Dosage: 750 MG

REACTIONS (7)
  - HAEMORRHAGE [None]
  - COAGULOPATHY [None]
  - ENCEPHALOPATHY [None]
  - MULTI-ORGAN FAILURE [None]
  - ACUTE HEPATIC FAILURE [None]
  - DRUG LEVEL INCREASED [None]
  - OVERDOSE [None]
